FAERS Safety Report 6767044-6 (Version None)
Quarter: 2010Q2

REPORT INFORMATION
  Report Type: 
  Country: None (occurrence: None)
  Receive Date: 20100611
  Receipt Date: 20100604
  Transmission Date: 20101027
  Serious: Yes (Death)
  Sender: FDA-Public Use
  Company Number: US-AMGEN-QUU416640

PATIENT
  Sex: Female

DRUGS (3)
  1. NPLATE [Suspect]
     Indication: IDIOPATHIC THROMBOCYTOPENIC PURPURA
     Dates: start: 20091009
  2. CORTICOSTEROIDS [Concomitant]
  3. IMMU-G [Concomitant]

REACTIONS (2)
  - BRAIN NEOPLASM [None]
  - CEREBRAL HAEMORRHAGE [None]
